FAERS Safety Report 12652875 (Version 1)
Quarter: 2016Q3

REPORT INFORMATION
  Report Type: Spontaneous
  Country: BE (occurrence: BE)
  Receive Date: 20160815
  Receipt Date: 20160815
  Transmission Date: 20161109
  Serious: Yes (Hospitalization, Other)
  Sender: FDA-Public Use
  Company Number: BE-HERITAGE PHARMACEUTICALS-2016HTG00197

PATIENT
  Age: 45 Year
  Sex: Female

DRUGS (5)
  1. VENLAFAXINE HYDROCHLORIDE. [Suspect]
     Active Substance: VENLAFAXINE HYDROCHLORIDE
     Indication: DEPRESSION
     Route: 065
  2. VENLAFAXINE HYDROCHLORIDE. [Suspect]
     Active Substance: VENLAFAXINE HYDROCHLORIDE
     Dosage: 4200 MG, ONCE
     Route: 048
  3. ALPRAZOLAM. [Suspect]
     Active Substance: ALPRAZOLAM
     Route: 065
  4. MIRTAZAPINE. [Concomitant]
     Active Substance: MIRTAZAPINE
     Route: 065
  5. ALPRAZOLAM. [Suspect]
     Active Substance: ALPRAZOLAM
     Dosage: 10 MG, ONCE
     Route: 048

REACTIONS (5)
  - Electrocardiogram QRS complex shortened [Recovered/Resolved]
  - Intentional overdose [Recovered/Resolved]
  - Left ventricular dysfunction [Recovered/Resolved]
  - Poisoning deliberate [Recovered/Resolved]
  - Right ventricular dysfunction [Recovered/Resolved]
